FAERS Safety Report 7621045-4 (Version None)
Quarter: 2011Q3

REPORT INFORMATION
  Report Type: 
  Country: None (occurrence: None)
  Receive Date: 20110719
  Receipt Date: 20101213
  Transmission Date: 20111222
  Serious: No
  Sender: FDA-Public Use
  Company Number: US-KINGPHARMUSA00001-K201001500

PATIENT
  Age: 42 Year
  Sex: Female
  Weight: 50.794 kg

DRUGS (1)
  1. LEVOXYL [Suspect]
     Indication: HYPOTHYROIDISM
     Dosage: 125 MCG, QD
     Route: 048
     Dates: start: 20020101

REACTIONS (4)
  - APHASIA [None]
  - DRUG INEFFECTIVE [None]
  - EXTRASYSTOLES [None]
  - ARTHRALGIA [None]
